FAERS Safety Report 5186483-0 (Version None)
Quarter: 2006Q4

REPORT INFORMATION
  Report Type: 
  Country: None (occurrence: None)
  Receive Date: 20061220
  Receipt Date: 20061211
  Transmission Date: 20070319
  Serious: Yes (Hospitalization)
  Sender: FDA-Public Use
  Company Number: NL-ELI_LILLY_AND_COMPANY-NL200612001878

PATIENT
  Age: 72 Year
  Sex: Female
  Weight: 75.9 kg

DRUGS (4)
  1. SOMATROPIN [Suspect]
     Indication: GROWTH HORMONE DEFICIENCY
     Dosage: 0.2 MG, DAILY (1/D)
     Route: 058
     Dates: start: 19980127
  2. NORVASC [Concomitant]
     Indication: HYPERTENSION
     Dosage: UNK, UNK
     Dates: start: 20051024
  3. LOSEC [Concomitant]
     Indication: REFLUX OESOPHAGITIS
     Dosage: UNK, UNK
     Dates: start: 20050520
  4. METAMUCIL-2 [Concomitant]
     Indication: IRRITABLE BOWEL SYNDROME
     Dosage: UNK, UNK
     Dates: start: 20040101

REACTIONS (1)
  - RENAL ONCOCYTOMA [None]
